FAERS Safety Report 6786395-2 (Version None)
Quarter: 2010Q2

REPORT INFORMATION
  Report Type: 
  Country: None (occurrence: None)
  Receive Date: 20100623
  Receipt Date: 20100611
  Transmission Date: 20101027
  Serious: Yes (Other)
  Sender: FDA-Public Use
  Company Number: US-JNJCH-2010008851

PATIENT
  Sex: Male
  Weight: 16.3 kg

DRUGS (2)
  1. CHILDREN'S ZYRTEC ALLERGY [Suspect]
     Indication: SEASONAL ALLERGY
     Dosage: TEXT:1/2 TSP PRN
     Route: 048
     Dates: start: 20100101, end: 20100411
  2. NEXIUM [Concomitant]
     Indication: GASTROOESOPHAGEAL REFLUX DISEASE
     Dosage: TEXT:UNKNOWN
     Route: 065

REACTIONS (11)
  - AGGRESSION [None]
  - DECREASED APPETITE [None]
  - DEHYDRATION [None]
  - DIARRHOEA HAEMORRHAGIC [None]
  - GASTRITIS [None]
  - GASTROOESOPHAGEAL REFLUX DISEASE [None]
  - MUCOUS STOOLS [None]
  - PRODUCT QUALITY ISSUE [None]
  - SOMNOLENCE [None]
  - VIRAL INFECTION [None]
  - WEIGHT DECREASED [None]
